FAERS Safety Report 5800570-2 (Version None)
Quarter: 2008Q3

REPORT INFORMATION
  Report Type: 
  Country: None (occurrence: None)
  Receive Date: 20080703
  Receipt Date: 20080627
  Transmission Date: 20090109
  Serious: Yes (Death, Life-Threatening, Hospitalization)
  Sender: FDA-Public Use
  Company Number: PHHO2008ES05536

PATIENT
  Sex: Male
  Weight: 57 kg

DRUGS (4)
  1. TASIGNA [Suspect]
     Indication: CHRONIC MYELOID LEUKAEMIA
     Dosage: 800 MG, QD
     Route: 048
     Dates: start: 20080417, end: 20080504
  2. ATENOLOL [Concomitant]
  3. ASPIRIN [Concomitant]
  4. PLAVIX [Concomitant]

REACTIONS (5)
  - ANAEMIA [None]
  - ANGINA UNSTABLE [None]
  - DYSPNOEA [None]
  - MULTI-ORGAN FAILURE [None]
  - PAIN [None]
